FAERS Safety Report 6863442-0 (Version None)
Quarter: 2010Q3

REPORT INFORMATION
  Report Type: 
  Country: None (occurrence: None)
  Receive Date: 20100721
  Receipt Date: 20100714
  Transmission Date: 20110219
  Serious: Yes (Other)
  Sender: FDA-Public Use
  Company Number: US-PFIZER INC-2010088942

PATIENT
  Sex: Female

DRUGS (1)
  1. SOMAVERT [Suspect]
     Indication: BLOOD GROWTH HORMONE INCREASED
     Dosage: 15 MG, UNK
     Route: 058
     Dates: start: 20080101

REACTIONS (5)
  - BLOOD SODIUM DECREASED [None]
  - CONFUSIONAL STATE [None]
  - INSULIN-LIKE GROWTH FACTOR DECREASED [None]
  - OEDEMA PERIPHERAL [None]
  - OXYGEN SATURATION DECREASED [None]
